FAERS Safety Report 20893898 (Version 1)
Quarter: 2022Q2

REPORT INFORMATION
  Report Type: Spontaneous
  Country: US (occurrence: None)
  Receive Date: 20220527
  Receipt Date: 20220527
  Transmission Date: 20220720
  Serious: Yes (Other)
  Sender: FDA-Public Use
  Company Number: None

PATIENT
  Age: 13 Year
  Sex: Female
  Weight: 118.39 kg

DRUGS (2)
  1. BEBTELOVIMAB [Suspect]
     Active Substance: BEBTELOVIMAB
  2. BEBTELOVIMAB [Concomitant]
     Active Substance: BEBTELOVIMAB

REACTIONS (5)
  - Cough [None]
  - Hyperhidrosis [None]
  - Dizziness [None]
  - Movement disorder [None]
  - Aphonia [None]

NARRATIVE: CASE EVENT DATE: 20220527
